FAERS Safety Report 18776872 (Version 2)
Quarter: 2021Q1

REPORT INFORMATION
  Report Type: Report from Study
  Country: US (occurrence: US)
  Receive Date: 20210122
  Receipt Date: 20210308
  Transmission Date: 20210419
  Serious: No
  Sender: FDA-Public Use
  Company Number: NVSC2021US010243

PATIENT
  Sex: Male

DRUGS (1)
  1. ENTRESTO [Suspect]
     Active Substance: SACUBITRIL\VALSARTAN
     Indication: PRODUCT USED FOR UNKNOWN INDICATION
     Dosage: 50 MG, BID (24/26)MG
     Route: 048
     Dates: start: 202012

REACTIONS (4)
  - Somnolence [Unknown]
  - Heart rate increased [Unknown]
  - Blood potassium increased [Unknown]
  - Asthenia [Unknown]
